FAERS Safety Report 15010181 (Version 1)
Quarter: 2018Q2

REPORT INFORMATION
  Report Type: Spontaneous
  Country: US (occurrence: US)
  Receive Date: 20180614
  Receipt Date: 20180614
  Transmission Date: 20180711
  Serious: Yes (Hospitalization, Other)
  Sender: FDA-Public Use
  Company Number: US-VIVIMED-2018SP004528

PATIENT

DRUGS (1)
  1. LOSARTAN. [Suspect]
     Active Substance: LOSARTAN
     Indication: HYPERTENSION
     Dosage: 50 MG, BID
     Route: 065

REACTIONS (3)
  - Sprue-like enteropathy [Recovered/Resolved]
  - Abnormal loss of weight [Recovered/Resolved]
  - Diarrhoea [Recovered/Resolved]
